FAERS Safety Report 20212384 (Version 2)
Quarter: 2022Q1

REPORT INFORMATION
  Report Type: Spontaneous
  Country: TR (occurrence: TR)
  Receive Date: 20211221
  Receipt Date: 20220128
  Transmission Date: 20220424
  Serious: Yes (Hospitalization)
  Sender: FDA-Public Use
  Company Number: TR-MLMSERVICE-20211124-3235349-1

PATIENT
  Age: 48 Year
  Sex: Female

DRUGS (13)
  1. LEVETIRACETAM [Suspect]
     Active Substance: LEVETIRACETAM
     Indication: Epilepsia partialis continua
     Dosage: 1000 MILLIGRAM, QD
     Route: 065
     Dates: start: 2019
  2. LEVETIRACETAM [Suspect]
     Active Substance: LEVETIRACETAM
     Indication: Prophylaxis
     Dosage: 1500 MILLIGRAM, QD
     Route: 065
     Dates: start: 201909
  3. LEVETIRACETAM [Suspect]
     Active Substance: LEVETIRACETAM
     Indication: Generalised tonic-clonic seizure
  4. LAMOTRIGINE [Suspect]
     Active Substance: LAMOTRIGINE
     Indication: Epilepsia partialis continua
     Dosage: 100 MILLIGRAM, QD
     Route: 065
     Dates: start: 2019
  5. LAMOTRIGINE [Suspect]
     Active Substance: LAMOTRIGINE
     Indication: Generalised tonic-clonic seizure
     Dosage: 200 MILLIGRAM, QD
     Route: 065
     Dates: start: 20201009
  6. PHENYTOIN SODIUM [Suspect]
     Active Substance: PHENYTOIN SODIUM
     Indication: Epilepsia partialis continua
     Dosage: 300 MILLIGRAM, QD
     Route: 065
     Dates: start: 2019
  7. PHENYTOIN SODIUM [Suspect]
     Active Substance: PHENYTOIN SODIUM
     Indication: Generalised tonic-clonic seizure
  8. GABAPENTIN [Suspect]
     Active Substance: GABAPENTIN
     Indication: Epilepsia partialis continua
     Dosage: 1200 MILLIGRAM, QD
     Route: 065
     Dates: start: 202010
  9. GABAPENTIN [Suspect]
     Active Substance: GABAPENTIN
     Indication: Generalised tonic-clonic seizure
     Dosage: 1600 MILLIGRAM, QD
     Route: 065
  10. TEMOZOLOMIDE [Concomitant]
     Active Substance: TEMOZOLOMIDE
     Indication: Chemotherapy
     Dosage: UNK
     Route: 065
     Dates: start: 202009
  11. TEMOZOLOMIDE [Concomitant]
     Active Substance: TEMOZOLOMIDE
     Indication: Astrocytoma
  12. DEXAMETHASONE [Concomitant]
     Active Substance: DEXAMETHASONE
     Indication: Astrocytoma
     Dosage: UNK
     Route: 065
     Dates: start: 202009
  13. DIAZEPAM [Concomitant]
     Active Substance: DIAZEPAM
     Indication: Epilepsia partialis continua
     Dosage: UNK
     Route: 042

REACTIONS (2)
  - Drug ineffective [Unknown]
  - Rash [Unknown]

NARRATIVE: CASE EVENT DATE: 20200101
